FAERS Safety Report 5812609-9 (Version None)
Quarter: 2008Q3

REPORT INFORMATION
  Report Type: 
  Country: None (occurrence: None)
  Receive Date: 20080714
  Receipt Date: 20080714
  Transmission Date: 20090109
  Serious: Yes (Hospitalization, Other)
  Sender: FDA-Public Use
  Company Number: None

PATIENT
  Age: 52 Year
  Sex: Male
  Weight: 94 kg

DRUGS (1)
  1. ETOPOSIDE [Suspect]
     Indication: BONE MARROW CONDITIONING REGIMEN
     Dosage: 4782 MG ONCE IV DRIP, 2-3 MONTHS AND SPORADIC
     Route: 041

REACTIONS (6)
  - ALKALOSIS [None]
  - BONE PAIN [None]
  - HYPERVENTILATION [None]
  - HYPOTENSION [None]
  - RESPIRATORY DISTRESS [None]
  - TACHYCARDIA [None]
